FAERS Safety Report 6637388-7 (Version None)
Quarter: 2010Q1

REPORT INFORMATION
  Report Type: 
  Country: None (occurrence: None)
  Receive Date: 20100311
  Receipt Date: 20100224
  Transmission Date: 20100710
  Serious: Yes (Other)
  Sender: FDA-Public Use
  Company Number: 2010AP000277

PATIENT
  Age: 15 Year
  Sex: Female

DRUGS (1)
  1. MYCOPHENOLATE MOFETIL [Suspect]
     Indication: LIVER TRANSPLANT

REACTIONS (3)
  - EMOTIONAL DISTRESS [None]
  - NO THERAPEUTIC RESPONSE [None]
  - SKIN PAPILLOMA [None]
